FAERS Safety Report 7326109-0 (Version None)
Quarter: 2011Q1

REPORT INFORMATION
  Report Type: 
  Country: None (occurrence: None)
  Receive Date: 20110302
  Receipt Date: 20110221
  Transmission Date: 20110831
  Serious: Yes (Other)
  Sender: FDA-Public Use
  Company Number: JP-ROCHE-759485

PATIENT
  Age: 26 Year
  Sex: Male

DRUGS (2)
  1. ACETAMINOPHEN [Concomitant]
     Dosage: FORM REPORTED AS PREORAL AGENT
     Route: 048
  2. TAMIFLU [Suspect]
     Dosage: DOSAGE IS UNCERTAIN
     Route: 048

REACTIONS (2)
  - HEPATITIS FULMINANT [None]
  - RHABDOMYOLYSIS [None]
